FAERS Safety Report 8247188-2 (Version None)
Quarter: 2012Q1

REPORT INFORMATION
  Report Type: 
  Country: None (occurrence: None)
  Receive Date: 20120330
  Receipt Date: 20120319
  Transmission Date: 20120608
  Serious: Yes (Hospitalization)
  Sender: FDA-Public Use
  Company Number: US-SANOFI-AVENTIS-2010SA012742

PATIENT
  Age: 70 Year
  Sex: Male
  Weight: 66.4 kg

DRUGS (13)
  1. DOCETAXEL [Suspect]
     Route: 042
     Dates: start: 20091016, end: 20091016
  2. LUPRON [Concomitant]
     Indication: HORMONE THERAPY
     Dates: start: 20000401
  3. HYDROCODONE BITARTRATE [Concomitant]
     Dates: start: 20091007
  4. NYSTATIN [Concomitant]
  5. DOCETAXEL [Suspect]
     Route: 042
     Dates: start: 20100108, end: 20100108
  6. PREDNISONE TAB [Suspect]
     Route: 048
     Dates: start: 20091016, end: 20100117
  7. AMITRIPTYLINE HCL [Concomitant]
  8. CELEBREX [Concomitant]
     Dates: start: 20090925
  9. NORFLEX [Concomitant]
     Dates: start: 20091007
  10. AFLIBERCEPT [Suspect]
     Route: 042
     Dates: start: 20100108, end: 20100108
  11. RANITIDINE [Concomitant]
  12. AFLIBERCEPT [Suspect]
     Route: 042
     Dates: start: 20091016, end: 20091016
  13. FLUCONAZOLE [Concomitant]

REACTIONS (1)
  - OESOPHAGEAL ULCER [None]
